FAERS Safety Report 4534271-8 (Version None)
Quarter: 2004Q4

REPORT INFORMATION
  Report Type: 
  Country: None (occurrence: None)
  Receive Date: 20041214
  Receipt Date: 20040825
  Transmission Date: 20050328
  Serious: No
  Sender: FDA-Public Use
  Company Number: 2004231414US

PATIENT
  Sex: Female
  Weight: 76.6 kg

DRUGS (6)
  1. BEXTRA [Suspect]
  2. PREMARIN [Concomitant]
  3. TOPROL-XL [Concomitant]
  4. LIPITOR [Concomitant]
  5. ALLEGRA [Concomitant]
  6. MULTIVITAMIN [Concomitant]

REACTIONS (1)
  - GASTRIC DISORDER [None]
